FAERS Safety Report 13033176 (Version 1)
Quarter: 2016Q4

REPORT INFORMATION
  Report Type: Spontaneous
  Country: US (occurrence: US)
  Receive Date: 20161215
  Receipt Date: 20161215
  Transmission Date: 20170207
  Serious: No
  Sender: FDA-Public Use
  Company Number: US-BAUSCH-BL-2016-010734

PATIENT
  Age: 36 Year
  Sex: Male
  Weight: 74.91 kg

DRUGS (1)
  1. TOBRAMYCIN AND DEXAMETHASONE [Suspect]
     Active Substance: DEXAMETHASONE\TOBRAMYCIN
     Indication: HORDEOLUM
     Route: 047
     Dates: start: 201603, end: 201603

REACTIONS (1)
  - Drug ineffective [Unknown]
